FAERS Safety Report 14101020 (Version 2)
Quarter: 2017Q4

REPORT INFORMATION
  Report Type: Report from Study
  Country: ES (occurrence: ES)
  Receive Date: 20171018
  Receipt Date: 20171218
  Transmission Date: 20180321
  Serious: Yes (Hospitalization)
  Sender: FDA-Public Use
  Company Number: ES-ROCHE-1991259

PATIENT
  Age: 52 Year
  Sex: Female
  Weight: 70.7 kg

DRUGS (2)
  1. ATEZOLIZUMAB. [Suspect]
     Active Substance: ATEZOLIZUMAB
     Indication: LUNG NEOPLASM MALIGNANT
     Dosage: MOST RECENT DOSE ON 07/SEP/2017?ON DAY 2 OF CYCLE 1 AND ON DAY 1 OF EVERY 21-DAY CYCLE THEREAFTER (A
     Route: 042
     Dates: start: 20170817
  2. DARATUMUMAB [Suspect]
     Active Substance: DARATUMUMAB
     Indication: LUNG NEOPLASM MALIGNANT
     Dosage: 16 MG/KG CONCENTRATE FOR SOLUTION FOR INFUSION WEEKLY FOR 3 CYCLES (DAY 1, 8 AND 15) AND DAY 1 OF EV
     Route: 042

REACTIONS (2)
  - Vocal cord paralysis [Recovered/Resolved]
  - Oral infection [Recovered/Resolved]

NARRATIVE: CASE EVENT DATE: 20170829
